FAERS Safety Report 7309047-9 (Version None)
Quarter: 2011Q1

REPORT INFORMATION
  Report Type: 
  Country: None (occurrence: None)
  Receive Date: 20110223
  Receipt Date: 20110216
  Transmission Date: 20110831
  Serious: Yes (Other)
  Sender: FDA-Public Use
  Company Number: US-US-EMD SERONO, INC.-7039117

PATIENT
  Sex: Male

DRUGS (2)
  1. REBIF [Suspect]
     Indication: MULTIPLE SCLEROSIS
     Route: 058
     Dates: start: 20100904, end: 20101113
  2. REBIF [Suspect]
     Route: 058
     Dates: start: 20110131

REACTIONS (3)
  - INJECTION SITE ERYTHEMA [None]
  - ACNE [None]
  - PNEUMONIA [None]
